FAERS Safety Report 15066328 (Version 1)
Quarter: 2018Q2

REPORT INFORMATION
  Report Type: Report from Study
  Country: SE (occurrence: SE)
  Receive Date: 20180626
  Receipt Date: 20180626
  Transmission Date: 20180711
  Serious: Yes (Other)
  Sender: FDA-Public Use
  Company Number: SE-BAYER-2018-115298

PATIENT
  Sex: Female
  Weight: 79 kg

DRUGS (1)
  1. MIRENA [Suspect]
     Active Substance: LEVONORGESTREL
     Indication: CONTRACEPTION
     Dosage: 20 MCG/24HR, CONT
     Route: 015
     Dates: start: 20160203, end: 20170616

REACTIONS (9)
  - Drug ineffective [None]
  - Induced abortion failed [Unknown]
  - Abdominal pain [Unknown]
  - Uterine perforation [Unknown]
  - Induced abortion haemorrhage [Unknown]
  - Retained products of conception [Unknown]
  - Induced abortion failed [Unknown]
  - Abdominal pain [Unknown]
  - Pregnancy with contraceptive device [Unknown]

NARRATIVE: CASE EVENT DATE: 20170427
